FAERS Safety Report 8536528-2 (Version None)
Quarter: 2012Q3

REPORT INFORMATION
  Report Type: 
  Country: None (occurrence: None)
  Receive Date: 20120718
  Receipt Date: 20120718
  Transmission Date: 20120928
  Serious: No
  Sender: FDA-Public Use
  Company Number: None

PATIENT
  Age: 59 Year
  Sex: Female
  Weight: 56.6996 kg

DRUGS (1)
  1. MERCAPTOPURINE [Suspect]
     Indication: COLITIS ULCERATIVE
     Dosage: 50-75 MG ONCE PER DAY PO
     Route: 048
     Dates: start: 20120120, end: 20120717

REACTIONS (2)
  - URINARY TRACT INFECTION [None]
  - POLLAKIURIA [None]
